FAERS Safety Report 12187581 (Version 1)
Quarter: 2016Q1

REPORT INFORMATION
  Report Type: Spontaneous
  Country: US (occurrence: None)
  Receive Date: 20160316
  Receipt Date: 20160316
  Transmission Date: 20160526
  Serious: No
  Sender: FDA-Public Use
  Company Number: None

PATIENT
  Age: 64 Year
  Sex: Male

DRUGS (7)
  1. MULTIVITAMIN [Concomitant]
     Active Substance: VITAMINS
  2. ASPIRIN. [Concomitant]
     Active Substance: ASPIRIN
  3. MILKTHISTLE [Concomitant]
  4. HARVONI [Suspect]
     Active Substance: LEDIPASVIR\SOFOSBUVIR
     Indication: CHRONIC HEPATITIS C
     Dosage: 90-400 MG
     Route: 048
     Dates: start: 20160219
  5. TRAMADOL TESTOST CYP [Concomitant]
  6. LOSARTAN. [Concomitant]
     Active Substance: LOSARTAN
  7. VITAMIN D3 [Concomitant]
     Active Substance: CHOLECALCIFEROL

REACTIONS (3)
  - Headache [None]
  - Fatigue [None]
  - Diarrhoea [None]

NARRATIVE: CASE EVENT DATE: 201602
